FAERS Safety Report 24524754 (Version 1)
Quarter: 2024Q4

REPORT INFORMATION
  Report Type: Spontaneous
  Country: ES (occurrence: ES)
  Receive Date: 20241019
  Receipt Date: 20241019
  Transmission Date: 20250114
  Serious: Yes (Hospitalization, Other)
  Sender: AUROBINDO
  Company Number: ES-AEMPS-1577917

PATIENT
  Age: 88 Year
  Sex: Female

DRUGS (12)
  1. APIXABAN [Suspect]
     Active Substance: APIXABAN
     Indication: Atrial fibrillation
     Dosage: 5.0 MILLIGRAM (5.0 MG C/12 H)
     Route: 048
     Dates: start: 20211202
  2. SPIRONOLACTONE [Concomitant]
     Active Substance: SPIRONOLACTONE
     Indication: Cardiac failure congestive
     Dosage: 12.5  MILLIGRAM (12.5 MG DE )
     Route: 048
     Dates: start: 20140530
  3. ACULAR [Concomitant]
     Active Substance: KETOROLAC TROMETHAMINE
     Indication: Ectropion
     Dosage: UNK (1.0 GTS C/8 HORAS)
     Dates: start: 20240404
  4. CALCIFEDIOL [Concomitant]
     Active Substance: CALCIFEDIOL
     Indication: Vitamin D deficiency
     Dosage: 0.266 MILLIGRAM (0.266 MG C/15 DIAS)
     Route: 048
     Dates: start: 20231116
  5. BISOPROLOL FUMARATE [Concomitant]
     Active Substance: BISOPROLOL FUMARATE
     Indication: Essential hypertension
     Dosage: 2.5 MILLIGRAM (2.5 MG D-DE)
     Route: 048
     Dates: start: 20171130
  6. ACTRAPID [Concomitant]
     Active Substance: INSULIN HUMAN
     Indication: Type 2 diabetes mellitus
     Dosage: 14.0 INTERNATIONAL UNIT (14.0 UI C/24 H )
     Route: 058
     Dates: start: 20150826
  7. TRAMADOL/PARACETAMOL CINFA [Concomitant]
     Indication: Spinal osteoarthritis
     Dosage: UNK (1.0 COMP C/8 HORAS)
     Route: 048
     Dates: start: 20190703
  8. ALLOPURINOL [Concomitant]
     Active Substance: ALLOPURINOL
     Indication: Gout
     Dosage: 150.0 MILLIGRAM (150.0 MG DE)
     Route: 048
     Dates: start: 20160716
  9. FUROSEMIDE [Concomitant]
     Active Substance: FUROSEMIDE
     Indication: Essential hypertension
     Dosage: 60.0 MILLIGRAM (60.0 MG C/24 H)
     Route: 048
     Dates: start: 20100818
  10. INSULIN HUMAN [Concomitant]
     Active Substance: INSULIN HUMAN
     Indication: Type 2 diabetes mellitus
     Dosage: 84.0 INTERNATIONAL UNIT (84.0 UI C/24 H)
     Route: 058
     Dates: start: 20101014
  11. FERROUS SULFATE [Concomitant]
     Active Substance: FERROUS SULFATE
     Indication: Iron deficiency anaemia
     Dosage: 105.0 MILLIGRAM (105.0 MG C/24 H AM)
     Route: 048
     Dates: start: 20230519
  12. SIMVASTATINA CINFA [Concomitant]
     Indication: Type IIa hyperlipidaemia
     Dosage: 20.0 MILLIGRAM (20.0 MG CE)
     Route: 048
     Dates: start: 20100817

REACTIONS (1)
  - Melaena [Recovering/Resolving]

NARRATIVE: CASE EVENT DATE: 20241001
